FAERS Safety Report 12568232 (Version 1)
Quarter: 2016Q3

REPORT INFORMATION
  Report Type: Spontaneous
  Country: GB (occurrence: GB)
  Receive Date: 20160718
  Receipt Date: 20160718
  Transmission Date: 20161109
  Serious: Yes (Other)
  Sender: FDA-Public Use
  Company Number: GB-TEVA-676512ACC

PATIENT
  Age: 19 Year
  Sex: Male

DRUGS (4)
  1. PAROXETINE. [Suspect]
     Active Substance: PAROXETINE
     Indication: PRODUCT USED FOR UNKNOWN INDICATION
     Dosage: 20 MILLIGRAM DAILY;
     Route: 065
     Dates: start: 19991222, end: 20041022
  2. PAXIL [Suspect]
     Active Substance: PAROXETINE HYDROCHLORIDE
     Indication: PRODUCT USED FOR UNKNOWN INDICATION
     Dosage: UNK
     Route: 065
     Dates: start: 19981202
  3. PROZAC [Concomitant]
     Active Substance: FLUOXETINE HYDROCHLORIDE
     Dates: start: 19940515
  4. SEROXAT [Suspect]
     Active Substance: PAROXETINE HYDROCHLORIDE
     Indication: PRODUCT USED FOR UNKNOWN INDICATION
     Dosage: UNK
     Route: 065
     Dates: start: 19981202

REACTIONS (30)
  - Depression [Unknown]
  - Weight increased [Unknown]
  - Physical assault [Unknown]
  - Insomnia [Unknown]
  - Irritability [Unknown]
  - Aggression [Unknown]
  - Dizziness [Unknown]
  - Fatigue [Unknown]
  - Sinusitis [Unknown]
  - Suicidal ideation [Unknown]
  - Vomiting [Unknown]
  - Tremor [Unknown]
  - Drug withdrawal syndrome [Unknown]
  - Condition aggravated [Unknown]
  - Paraesthesia [Unknown]
  - Disturbance in attention [Unknown]
  - Headache [Unknown]
  - Mood swings [Unknown]
  - Obsessive-compulsive disorder [Unknown]
  - Panic attack [Unknown]
  - Palpitations [Unknown]
  - Eye swelling [Unknown]
  - Emotional disorder [Unknown]
  - Apathy [Unknown]
  - Diplopia [Unknown]
  - Anxiety [Unknown]
  - Avoidant personality disorder [Unknown]
  - Nausea [Unknown]
  - Hyperhidrosis [Unknown]
  - Mental disorder [Unknown]

NARRATIVE: CASE EVENT DATE: 19991222
